FAERS Safety Report 18299769 (Version 1)
Quarter: 2020Q3

REPORT INFORMATION
  Report Type: Spontaneous
  Country: US (occurrence: US)
  Receive Date: 20200922
  Receipt Date: 20200922
  Transmission Date: 20201103
  Serious: No
  Sender: FDA-Public Use
  Company Number: None

PATIENT
  Sex: Male

DRUGS (1)
  1. NINLARO [Suspect]
     Active Substance: IXAZOMIB CITRATE
     Indication: PLASMA CELL MYELOMA IN REMISSION
     Dosage: ?          OTHER FREQUENCY:SEE EVENT; (NINLARO FREQUENCY: DAYS 1, 8, AND 15 OF EVERY 28 DAYS. POMALYST FREQUENCY: DAILY FOR 3 WEEKS ON, 1 WEEK OFF.)?
     Route: 048
     Dates: start: 20200222

REACTIONS (2)
  - Cytogenetic abnormality [None]
  - Recurrent cancer [None]
